FAERS Safety Report 4674157-1 (Version None)
Quarter: 2005Q2

REPORT INFORMATION
  Report Type: 
  Country: None (occurrence: None)
  Receive Date: 20050524
  Receipt Date: 20050524
  Transmission Date: 20051028
  Serious: No
  Sender: FDA-Public Use
  Company Number: None

PATIENT
  Sex: Female
  Weight: 78 kg

DRUGS (4)
  1. ZOLADEX [Suspect]
     Dosage: 3.6 SC
     Route: 058
     Dates: start: 20050117
  2. FLUOROURACIL [Suspect]
     Dosage: 700 MG
     Dates: start: 20050117
  3. CYCLOPHOSPHAMIDE [Suspect]
     Dosage: 700 MG
     Dates: start: 20050117
  4. EPIRUBICIN [Suspect]
     Dosage: 140 MG
     Dates: start: 20050117

REACTIONS (9)
  - COUGH [None]
  - HEART RATE DECREASED [None]
  - MALAISE [None]
  - MYALGIA [None]
  - OXYGEN SATURATION DECREASED [None]
  - PNEUMONIA [None]
  - PYREXIA [None]
  - SELF-MEDICATION [None]
  - VOMITING [None]
